FAERS Safety Report 9937006 (Version 1)
Quarter: 2014Q1

REPORT INFORMATION
  Report Type: Spontaneous
  Country: US (occurrence: None)
  Receive Date: 20140116
  Receipt Date: 20140116
  Transmission Date: 20141002
  Serious: Yes (Other)
  Sender: FDA-Public Use
  Company Number: 2013AP000171

PATIENT
  Age: 47 Year
  Sex: Female

DRUGS (6)
  1. OMEPRAZOLE DELAYED-RELEASE CAPSULES, USP [Suspect]
     Indication: GASTROOESOPHAGEAL REFLUX DISEASE
     Route: 048
     Dates: start: 200908, end: 20100806
  2. CLOZAPINE [Concomitant]
  3. LEVOTHYROXINE SODIUM [Concomitant]
  4. OLANZAPINE [Concomitant]
  5. OXCARBAZEPINE [Concomitant]
  6. SERTRALINE [Concomitant]

REACTIONS (1)
  - Granulocytopenia [None]
